FAERS Safety Report 6646682-5 (Version None)
Quarter: 2010Q1

REPORT INFORMATION
  Report Type: 
  Country: None (occurrence: None)
  Receive Date: 20100309
  Receipt Date: 20100211
  Transmission Date: 20100710
  Serious: Yes (Other)
  Sender: FDA-Public Use
  Company Number: 2010SP008773

PATIENT
  Sex: Female

DRUGS (3)
  1. SAPHRIS [Suspect]
     Indication: DRUG USE FOR UNKNOWN INDICATION
     Dosage: 5 MG;BID; 10 MG;BID
     Dates: start: 20100101, end: 20100101
  2. SAPHRIS [Suspect]
     Indication: DRUG USE FOR UNKNOWN INDICATION
     Dosage: 5 MG;BID; 10 MG;BID
     Dates: start: 20100101, end: 20100101
  3. INVEGA (CON.) [Concomitant]

REACTIONS (2)
  - AKATHISIA [None]
  - MANIA [None]
